FAERS Safety Report 5360228-3 (Version None)
Quarter: 2007Q2

REPORT INFORMATION
  Report Type: 
  Country: None (occurrence: None)
  Receive Date: 20070618
  Receipt Date: 20070614
  Transmission Date: 20071010
  Serious: Yes (Other)
  Sender: FDA-Public Use
  Company Number: FR-ELI_LILLY_AND_COMPANY-FR200705003742

PATIENT
  Age: 25 Year
  Sex: Male
  Weight: 57 kg

DRUGS (2)
  1. ZYPREXA [Suspect]
     Dosage: 10 MG, DAILY (1/D)
     Route: 048
     Dates: start: 20070419, end: 20070518
  2. ZYPREXA [Suspect]
     Dosage: 30 MG, DAILY (1/D)
     Route: 048

REACTIONS (5)
  - BLOOD CHOLESTEROL INCREASED [None]
  - EOSINOPHILIA [None]
  - HEPATOCELLULAR DAMAGE [None]
  - PRESCRIBED OVERDOSE [None]
  - WEIGHT INCREASED [None]
